FAERS Safety Report 17495815 (Version 4)
Quarter: 2022Q1

REPORT INFORMATION
  Report Type: Report from Study
  Country: BE (occurrence: BE)
  Receive Date: 20200303
  Receipt Date: 20220113
  Transmission Date: 20220423
  Serious: Yes (Other)
  Sender: FDA-Public Use
  Company Number: BE-BEH-2020113839

PATIENT
  Sex: Female

DRUGS (1)
  1. HIZENTRA [Suspect]
     Active Substance: HUMAN IMMUNOGLOBULIN G
     Dosage: 8 GRAM / 40 MILLILITER, QW
     Route: 058

REACTIONS (6)
  - Syncope [Unknown]
  - Pallor [Unknown]
  - Presyncope [Unknown]
  - Fatigue [Unknown]
  - Headache [Unknown]
  - Headache [Unknown]
